FAERS Safety Report 7720717-0 (Version None)
Quarter: 2011Q3

REPORT INFORMATION
  Report Type: 
  Country: None (occurrence: None)
  Receive Date: 20110825
  Receipt Date: 20110822
  Transmission Date: 20111222
  Serious: Yes (Death, Life-Threatening, Other)
  Sender: FDA-Public Use
  Company Number: US-2011-10570

PATIENT
  Age: 18 Year
  Sex: Male

DRUGS (2)
  1. BUSULFEX [Suspect]
     Indication: STEM CELL TRANSPLANT
     Dosage: ORAL
     Route: 048
  2. CYCLOPHOSPHAMIDE [Suspect]
     Indication: STEM CELL TRANSPLANT

REACTIONS (5)
  - SPLENOMEGALY [None]
  - PANCYTOPENIA [None]
  - FEBRILE NEUTROPENIA [None]
  - PYREXIA [None]
  - NIGHT SWEATS [None]
